FAERS Safety Report 17399329 (Version 2)
Quarter: 2020Q1

REPORT INFORMATION
  Report Type: Report from Study
  Country: None (occurrence: US)
  Receive Date: 20200211
  Receipt Date: 20200303
  Transmission Date: 20200409
  Serious: Yes (Other)
  Sender: FDA-Public Use
  Company Number: US-ABBVIE-20K-163-3267031-00

PATIENT
  Age: 43 Year
  Sex: Female

DRUGS (1)
  1. HUMIRA [Suspect]
     Active Substance: ADALIMUMAB
     Indication: RHEUMATOID ARTHRITIS
     Route: 058
     Dates: start: 20200117

REACTIONS (7)
  - Loss of personal independence in daily activities [Unknown]
  - Pain [Recovering/Resolving]
  - Joint stiffness [Recovering/Resolving]
  - Diarrhoea [Recovered/Resolved]
  - Systemic lupus erythematosus [Unknown]
  - Cough [Unknown]
  - Joint swelling [Unknown]

NARRATIVE: CASE EVENT DATE: 2020
